FAERS Safety Report 5917923-4 (Version None)
Quarter: 2008Q4

REPORT INFORMATION
  Report Type: 
  Country: None (occurrence: None)
  Receive Date: 20081009
  Receipt Date: 20080929
  Transmission Date: 20090506
  Serious: Yes (Life-Threatening, Hospitalization)
  Sender: FDA-Public Use
  Company Number: MSTR-NO-0808S-0052

PATIENT
  Age: 76 Year
  Sex: Female
  Weight: 35 kg

DRUGS (1)
  1. METASTRON [Suspect]
     Indication: METASTATIC PAIN
     Dosage: ACTIVITY NOT REPORTED., SINGLE
     Dates: start: 20080708, end: 20080708

REACTIONS (9)
  - CONDITION AGGRAVATED [None]
  - DISSEMINATED INTRAVASCULAR COAGULATION [None]
  - GASTRITIS HAEMORRHAGIC [None]
  - GENERAL PHYSICAL HEALTH DETERIORATION [None]
  - HAEMORRHAGE [None]
  - HOT FLUSH [None]
  - METASTATIC PAIN [None]
  - PLATELET COUNT DECREASED [None]
  - TERMINAL STATE [None]
